FAERS Safety Report 4501075-1 (Version None)
Quarter: 2004Q3

REPORT INFORMATION
  Report Type: 
  Country: None (occurrence: None)
  Receive Date: 20040927
  Receipt Date: 20040812
  Transmission Date: 20050211
  Serious: No
  Sender: FDA-Public Use
  Company Number: USA040875301

PATIENT
  Age: 44 Year
  Sex: Male
  Weight: 84 kg

DRUGS (2)
  1. STRATTERA [Suspect]
     Indication: ATTENTION DEFICIT/HYPERACTIVITY DISORDER
     Dosage: 80 MG DAY
     Dates: start: 20030101
  2. LEXAPRO [Concomitant]

REACTIONS (3)
  - DYSURIA [None]
  - HYPERTONIA [None]
  - LIBIDO DECREASED [None]
